FAERS Safety Report 6577091-5 (Version None)
Quarter: 2010Q1

REPORT INFORMATION
  Report Type: 
  Country: None (occurrence: None)
  Receive Date: 20100210
  Receipt Date: 20100201
  Transmission Date: 20100710
  Serious: Yes (Hospitalization)
  Sender: FDA-Public Use
  Company Number: JP-NOVOPROD-303908

PATIENT
  Age: 50 Year
  Sex: Male
  Weight: 65.7 kg

DRUGS (2)
  1. NOVOLIN R [Suspect]
     Indication: DIABETES MELLITUS
     Dosage: 24 UNITS BEFORE BREAKFAST AND 20 UNITS BEFORE SUPPER
  2. NOVOLIN R [Suspect]
     Dosage: ONE-TIME DOSIS IS CALCULATED TO BE 1,120 UNITS OR MORE

REACTIONS (3)
  - HYPERGLYCAEMIA [None]
  - HYPERINSULINISM [None]
  - INTENTIONAL OVERDOSE [None]
